FAERS Safety Report 6112398-7 (Version None)
Quarter: 2009Q1

REPORT INFORMATION
  Report Type: 
  Country: None (occurrence: None)
  Receive Date: 20090312
  Receipt Date: 20090302
  Transmission Date: 20090719
  Serious: Yes (Hospitalization)
  Sender: FDA-Public Use
  Company Number: GB-RANBAXY-2009RR-22320

PATIENT
  Age: 62 Year
  Sex: Female
  Weight: 85 kg

DRUGS (14)
  1. CLARITHROMYCIN [Suspect]
     Indication: LOWER RESPIRATORY TRACT INFECTION
     Dosage: 500 MG, BID
     Route: 048
     Dates: start: 20081130, end: 20081202
  2. FUSIDIC ACID [Suspect]
     Indication: ARTHRITIS INFECTIVE
     Dosage: 500 MG, TID
     Route: 048
     Dates: start: 20081007, end: 20081111
  3. WARFARIN SODIUM [Suspect]
     Indication: PULMONARY EMBOLISM
     Dosage: 1 DF, QD
     Route: 048
     Dates: start: 20080207, end: 20081202
  4. ENOXAPARIN SODIUM [Suspect]
  5. CALCICHEW D3 [Concomitant]
  6. DOTHIEPIN HYDROCHLORIDE [Concomitant]
  7. LANSOPRAZOLE [Concomitant]
  8. LEVOTHYROXINE SODIUM [Concomitant]
  9. NAPROXEN [Concomitant]
  10. ONDANSETRON [Concomitant]
  11. RAMIPRIL [Concomitant]
  12. TEMAZEPAM [Concomitant]
  13. TRAMADOL HCL [Concomitant]
  14. TRIMETHOPRIM [Concomitant]

REACTIONS (3)
  - DRUG INTERACTION [None]
  - HAEMORRHAGE [None]
  - INTERNATIONAL NORMALISED RATIO INCREASED [None]
